FAERS Safety Report 16274222 (Version 1)
Quarter: 2019Q2

REPORT INFORMATION
  Report Type: Spontaneous
  Country: US (occurrence: US)
  Receive Date: 20190504
  Receipt Date: 20190504
  Transmission Date: 20190711
  Serious: Yes (Other)
  Sender: FDA-Public Use
  Company Number: US-TEVA-2019-US-1043895

PATIENT
  Age: 64 Year
  Sex: Female

DRUGS (1)
  1. ACICLOVIR TABLETS TEVA [Suspect]
     Active Substance: ACYCLOVIR
     Indication: GENITAL HERPES
     Dosage: 400 MILLIGRAM DAILY;
     Route: 065
     Dates: start: 1976

REACTIONS (2)
  - Expired product administered [Unknown]
  - Gallbladder operation [Unknown]
